FAERS Safety Report 17194642 (Version 2)
Quarter: 2020Q1

REPORT INFORMATION
  Report Type: Report from Study
  Country: None (occurrence: US)
  Receive Date: 20191224
  Receipt Date: 20200205
  Transmission Date: 20200409
  Serious: Yes (Hospitalization, Other)
  Sender: FDA-Public Use
  Company Number: US-ABBVIE-19K-163-3204639-00

PATIENT
  Age: 19 Year
  Sex: Female

DRUGS (1)
  1. HUMIRA [Suspect]
     Active Substance: ADALIMUMAB
     Indication: CROHN^S DISEASE
     Dosage: CITRATE FREE
     Route: 058
     Dates: start: 20190810

REACTIONS (4)
  - Fear of disease [Recovering/Resolving]
  - Migraine with aura [Unknown]
  - Adrenocortical insufficiency acute [Recovering/Resolving]
  - Hemiplegic migraine [Unknown]

NARRATIVE: CASE EVENT DATE: 201909
